FAERS Safety Report 5935663-2 (Version None)
Quarter: 2008Q4

REPORT INFORMATION
  Report Type: 
  Country: None (occurrence: None)
  Receive Date: 20081028
  Receipt Date: 20081014
  Transmission Date: 20090506
  Serious: Yes (Hospitalization)
  Sender: FDA-Public Use
  Company Number: 08-001

PATIENT
  Age: 87 Year
  Sex: Female
  Weight: 54.4316 kg

DRUGS (2)
  1. CETACAINE SPRAY [Suspect]
     Indication: ANAESTHESIA
     Dosage: 3-4 SEC. ICH CODE 060
     Dates: start: 20081013
  2. LIDOCAINE LOLLIPOP [Concomitant]

REACTIONS (5)
  - DYSPNOEA [None]
  - NO REACTION ON PREVIOUS EXPOSURE TO DRUG [None]
  - OROPHARYNGEAL PAIN [None]
  - PHARYNGEAL OEDEMA [None]
  - THROAT IRRITATION [None]
